FAERS Safety Report 8256543-6 (Version None)
Quarter: 2012Q1

REPORT INFORMATION
  Report Type: 
  Country: None (occurrence: None)
  Receive Date: 20120330
  Receipt Date: 20120322
  Transmission Date: 20120608
  Serious: Yes (Other)
  Sender: FDA-Public Use
  Company Number: 2011SP023804

PATIENT
  Age: 45 Year
  Sex: Female
  Weight: 60 kg

DRUGS (2)
  1. BETAMETHASONE SODIUM PHOSPHATE [Suspect]
     Indication: INFLAMMATION
     Dosage: ONCE
     Dates: start: 20110429, end: 20110429
  2. OMEPRAZOLE [Concomitant]

REACTIONS (2)
  - BLINDNESS UNILATERAL [None]
  - RETINOPATHY [None]
